FAERS Safety Report 9115636 (Version 1)
Quarter: 2013Q1

REPORT INFORMATION
  Report Type: Spontaneous
  Country: US (occurrence: US)
  Receive Date: 20130225
  Receipt Date: 20130225
  Transmission Date: 20140127
  Serious: No
  Sender: FDA-Public Use
  Company Number: US-BRISTOL-MYERS SQUIBB COMPANY-16650111

PATIENT
  Sex: Female

DRUGS (1)
  1. KENALOG-10 INJ [Suspect]
     Indication: PLANTAR FASCIITIS
     Dosage: 1DF:1 INJECTION OF 0.5 CC
     Dates: start: 20120501

REACTIONS (3)
  - Diarrhoea [Not Recovered/Not Resolved]
  - Nausea [Not Recovered/Not Resolved]
  - Vomiting [Recovered/Resolved]
